FAERS Safety Report 6744170-9 (Version None)
Quarter: 2010Q2

REPORT INFORMATION
  Report Type: 
  Country: None (occurrence: None)
  Receive Date: 20100527
  Receipt Date: 20100518
  Transmission Date: 20101027
  Serious: Yes (Other)
  Sender: FDA-Public Use
  Company Number: US-AMGEN-KDL410816

PATIENT
  Sex: Female
  Weight: 93.1 kg

DRUGS (8)
  1. ENBREL [Suspect]
     Indication: PSORIASIS
     Route: 058
     Dates: start: 20090610, end: 20090903
  2. ZANTAC [Concomitant]
  3. FLEXERIL [Concomitant]
  4. LASIX [Concomitant]
  5. NORVASC [Concomitant]
  6. REGLAN [Concomitant]
  7. TOPROL-XL [Concomitant]
  8. LOVASTATIN [Concomitant]

REACTIONS (2)
  - HYPOAESTHESIA [None]
  - PARAESTHESIA [None]
